FAERS Safety Report 6538590 (Version 2)
Quarter: 2020Q4

REPORT INFORMATION
  Report Type: Spontaneous
  Country: AU (occurrence: AU)
  Receive Date: 20080130
  Receipt Date: 20201028
  Transmission Date: 20210114
  Serious: Yes (Life-Threatening, Other)
  Sender: FDA-Public Use
  Company Number: AU-ALLERGAN-0800938US

PATIENT

DRUGS (1)
  1. BOTULINUM TOXIN TYPE A UNK [Suspect]
     Active Substance: BOTULINUM TOXIN TYPE A
     Indication: DROOLING
     Dosage: UNK, SINGLE

REACTIONS (4)
  - Off label use [Unknown]
  - Dysphagia [Unknown]
  - Choking [Unknown]
  - Speech disorder [Unknown]
